FAERS Safety Report 9497566 (Version 1)
Quarter: 2013Q3

REPORT INFORMATION
  Report Type: Spontaneous
  Country: CN (occurrence: CN)
  Receive Date: 20130904
  Receipt Date: 20130904
  Transmission Date: 20140515
  Serious: Yes (Other)
  Sender: FDA-Public Use
  Company Number: CN-PFIZER INC-2013252648

PATIENT
  Age: 83 Year
  Sex: Female
  Weight: 48 kg

DRUGS (1)
  1. TAZOCIN [Suspect]
     Indication: LUNG INFECTION
     Dosage: 4.5 G, 2X/DAY
     Route: 041
     Dates: start: 20120325, end: 20120327

REACTIONS (1)
  - Encephalopathy [Recovering/Resolving]
